FAERS Safety Report 7456357-0 (Version None)
Quarter: 2011Q2

REPORT INFORMATION
  Report Type: 
  Country: None (occurrence: None)
  Receive Date: 20110426
  Receipt Date: 20110411
  Transmission Date: 20111010
  Serious: Yes (Hospitalization, Other)
  Sender: FDA-Public Use
  Company Number: 2011MA003690

PATIENT
  Age: 57 Year
  Sex: Female

DRUGS (2)
  1. BETAMETHASONE DIPROPIONATE [Suspect]
     Indication: WHEEZING
     Dosage: 2 MG; OD; PO
     Route: 048
     Dates: start: 20090201
  2. BETAMETHASONE DIPROPIONATE [Suspect]
     Indication: DYSPNOEA
     Dosage: 2 MG; OD; PO
     Route: 048
     Dates: start: 20090201

REACTIONS (4)
  - HALLUCINATION, AUDITORY [None]
  - DYSPNOEA [None]
  - HALLUCINATION, TACTILE [None]
  - CONDITION AGGRAVATED [None]
